FAERS Safety Report 11126817 (Version 2)
Quarter: 2015Q2

REPORT INFORMATION
  Report Type: Spontaneous
  Country: BR (occurrence: BR)
  Receive Date: 20150520
  Receipt Date: 20150624
  Transmission Date: 20150821
  Serious: Yes (Life-Threatening, Hospitalization, Other)
  Sender: FDA-Public Use
  Company Number: PHHY2015BR061065

PATIENT
  Age: 47 Year
  Sex: Female
  Weight: 53 kg

DRUGS (5)
  1. CARBAMAZEPINE. [Suspect]
     Active Substance: CARBAMAZEPINE
     Indication: ANXIETY
     Dosage: UNK UNK, BID
     Route: 048
     Dates: start: 20140819
  2. TEGRETOL [Suspect]
     Active Substance: CARBAMAZEPINE
     Indication: ANXIETY
     Dosage: UNK
     Route: 065
     Dates: start: 201409
  3. CARBAMAZEPINE. [Suspect]
     Active Substance: CARBAMAZEPINE
     Dosage: UNK UNK, QD
     Route: 048
     Dates: start: 20140819
  4. QUETIAPIN [Concomitant]
     Active Substance: QUETIAPINE
     Indication: PRODUCT USED FOR UNKNOWN INDICATION
     Dosage: UNK UNK, QD
     Route: 048
     Dates: start: 20140818, end: 20140909
  5. TEGRETOL [Suspect]
     Active Substance: CARBAMAZEPINE
     Indication: DEPRESSION

REACTIONS (13)
  - Drug reaction with eosinophilia and systemic symptoms [Unknown]
  - Skin disorder [Not Recovered/Not Resolved]
  - Erythema [Not Recovered/Not Resolved]
  - Oral disorder [Unknown]
  - Neck pain [Unknown]
  - Off label use [Unknown]
  - Swelling face [Unknown]
  - Pyrexia [Unknown]
  - Neuropathy peripheral [Recovering/Resolving]
  - Local swelling [Unknown]
  - Lymph node pain [Unknown]
  - Peripheral swelling [Unknown]
  - Sudden onset of sleep [Unknown]

NARRATIVE: CASE EVENT DATE: 20140908
